FAERS Safety Report 4696116-5 (Version None)
Quarter: 2005Q2

REPORT INFORMATION
  Report Type: 
  Country: None (occurrence: None)
  Receive Date: 20050620
  Receipt Date: 20050602
  Transmission Date: 20051028
  Serious: Yes (Other)
  Sender: FDA-Public Use
  Company Number: DSA_26567_2005

PATIENT
  Age: 42 Year
  Sex: Female
  Weight: 81 kg

DRUGS (14)
  1. TEMESTA [Suspect]
     Dosage: 0.5 MG Q DAY
     Dates: start: 20050212, end: 20050213
  2. TEMESTA [Suspect]
     Dosage: 1 MG Q DAY
     Dates: start: 20050208, end: 20050211
  3. TEMESTA [Suspect]
     Dosage: 1.5 MG Q DAY
     Dates: start: 20050204, end: 20050207
  4. TEMESTA [Suspect]
     Dosage: 2 MG Q DAY
     Dates: start: 20050127, end: 20050203
  5. TEMESTA [Suspect]
     Dosage: 1.5 MG Q DAY
     Dates: start: 20050126, end: 20050126
  6. TEMESTA [Suspect]
     Dosage: 1 MG Q DAY
     Dates: start: 20050124, end: 20050125
  7. SEROQUEL [Suspect]
     Dosage: 800 MG Q DAY
     Dates: start: 20050209
  8. SEROQUEL [Suspect]
     Dosage: 700 MG Q DAY
     Dates: start: 20050208, end: 20050208
  9. SEROQUEL [Suspect]
     Dosage: 600 MG Q DAY
     Dates: start: 20050130, end: 20050207
  10. SEROQUEL [Suspect]
     Dosage: 400 MG Q DAY
     Dates: start: 20050129, end: 20050129
  11. SEROQUEL [Suspect]
     Dosage: 300 MG Q DAY
     Dates: start: 20050128, end: 20050128
  12. SEROQUEL [Suspect]
     Dosage: 200 MG Q DAY
     Dates: start: 20050127, end: 20050127
  13. SEROQUEL [Suspect]
     Dosage: 10 MG Q DAY
     Dates: start: 20050125, end: 20050126
  14. DOMINAL [Concomitant]

REACTIONS (5)
  - ALANINE AMINOTRANSFERASE INCREASED [None]
  - ASPARTATE AMINOTRANSFERASE INCREASED [None]
  - BLOOD ALKALINE PHOSPHATASE INCREASED [None]
  - GAMMA-GLUTAMYLTRANSFERASE INCREASED [None]
  - GLUTAMATE DEHYDROGENASE INCREASED [None]
